FAERS Safety Report 5039985-1 (Version None)
Quarter: 2006Q2

REPORT INFORMATION
  Report Type: 
  Country: None (occurrence: None)
  Receive Date: 20060630
  Receipt Date: 20060621
  Transmission Date: 20061013
  Serious: Yes (Other)
  Sender: FDA-Public Use
  Company Number: 2006UW13169

PATIENT
  Age: 77 Year
  Sex: Female
  Weight: 59 kg

DRUGS (5)
  1. CRESTOR [Suspect]
     Indication: BLOOD CHOLESTEROL INCREASED
     Route: 048
     Dates: start: 20040101
  2. CRESTOR [Suspect]
     Dosage: 10 MG 1/2 TABLET
     Route: 048
     Dates: start: 20060101
  3. TOPROL-XL [Concomitant]
  4. LEVOTHYROXINE SODIUM [Concomitant]
  5. ASPIRIN [Concomitant]

REACTIONS (2)
  - MACULAR DEGENERATION [None]
  - MUSCLE SPASMS [None]
